FAERS Safety Report 9768891 (Version 3)
Quarter: 2014Q1

REPORT INFORMATION
  Report Type: Report from Study
  Country: US (occurrence: US)
  Receive Date: 20131218
  Receipt Date: 20140114
  Transmission Date: 20141002
  Serious: No
  Sender: FDA-Public Use
  Company Number: US-009507513-1312USA002212

PATIENT
  Sex: 0

DRUGS (11)
  1. REBETOL [Suspect]
     Indication: CHRONIC HEPATITIS C
     Dosage: 1200 MG
     Route: 048
  2. REBETOL [Interacting]
     Dosage: 1000 MG
     Route: 048
  3. REBETOL [Interacting]
     Dosage: 800 MG, UNK
     Route: 048
  4. REBETOL [Interacting]
     Dosage: 600 MG, UNK
     Route: 048
  5. VICTRELIS [Interacting]
     Indication: CHRONIC HEPATITIS C
     Dosage: 800 MG, TID
     Route: 048
  6. SIMVASTATIN [Interacting]
     Route: 048
  7. PEGINTERFERON ALFA-2A [Interacting]
     Indication: CHRONIC HEPATITIS C
     Dosage: 180 MICROGRAM, UNK
  8. PEGINTERFERON ALFA-2A [Interacting]
     Dosage: 150 MICROGRAM, UNK
  9. PEGINTERFERON ALFA-2A [Interacting]
     Dosage: 135 MICROGRAM, UNK
  10. PEGINTERFERON ALFA-2A [Interacting]
     Dosage: 120 MICROGRAM, UNK
  11. TRAMADOL HYDROCHLORIDE [Interacting]

REACTIONS (8)
  - Influenza like illness [Unknown]
  - Rash [Unknown]
  - Diarrhoea [Unknown]
  - Vomiting [Unknown]
  - Nausea [Unknown]
  - Anaemia [Unknown]
  - Leukopenia [Unknown]
  - Drug interaction [Unknown]
